FAERS Safety Report 8200666-4 (Version None)
Quarter: 2012Q1

REPORT INFORMATION
  Report Type: 
  Country: None (occurrence: None)
  Receive Date: 20120312
  Receipt Date: 20120302
  Transmission Date: 20120608
  Serious: Yes (Hospitalization, Other)
  Sender: FDA-Public Use
  Company Number: US-ASTELLAS-2012US001619

PATIENT
  Sex: Female
  Weight: 91 kg

DRUGS (2)
  1. PROGRAF [Suspect]
     Indication: RENAL TRANSPLANT
     Dosage: 1 MG, BID
     Route: 048
     Dates: start: 20000223
  2. PROGRAF [Suspect]
     Indication: PANCREAS TRANSPLANT

REACTIONS (4)
  - CARDIAC FAILURE CONGESTIVE [None]
  - GRAFT THROMBOSIS [None]
  - OFF LABEL USE [None]
  - POST PROCEDURAL COMPLICATION [None]
